FAERS Safety Report 7503885-5 (Version None)
Quarter: 2011Q2

REPORT INFORMATION
  Report Type: 
  Country: None (occurrence: None)
  Receive Date: 20110525
  Receipt Date: 20110512
  Transmission Date: 20111010
  Serious: Yes (Hospitalization, Other)
  Sender: FDA-Public Use
  Company Number: US-BAYER-201037776NA

PATIENT
  Age: 31 Year
  Sex: Female

DRUGS (9)
  1. ANUCORT-HC [Concomitant]
     Dosage: UNK
     Route: 054
     Dates: start: 20080101, end: 20090101
  2. CYCLOBENZAPRINE [Concomitant]
     Dosage: 10 MG, UNK
     Route: 048
     Dates: start: 20080101, end: 20090101
  3. RELPAX [Concomitant]
     Dosage: 40 MG, UNK
     Route: 048
     Dates: start: 20080101, end: 20090101
  4. YAZ [Suspect]
     Indication: PREMENSTRUAL SYNDROME
     Dosage: UNK UNK, UNK
     Route: 048
     Dates: start: 20080101, end: 20090101
  5. YASMIN [Suspect]
     Indication: PREMENSTRUAL SYNDROME
     Dosage: UNK UNK, UNK
     Route: 048
     Dates: start: 20080101, end: 20090101
  6. PROTOZOL [Concomitant]
     Dosage: UNK
     Route: 061
     Dates: start: 20080101, end: 20090101
  7. CIPROFLOXACIN [Concomitant]
     Dosage: 500 MG, UNK
     Route: 048
     Dates: start: 20080101, end: 20090101
  8. FLUCONAZOLE [Concomitant]
     Dosage: UNK
     Route: 048
     Dates: start: 20080101, end: 20090101
  9. PROPRANOLOL [Concomitant]
     Dosage: 80 MG, UNK
     Route: 048
     Dates: start: 20080101, end: 20090101

REACTIONS (4)
  - GALLBLADDER INJURY [None]
  - GALLBLADDER DISORDER [None]
  - CHOLELITHIASIS [None]
  - CHOLECYSTITIS [None]
